FAERS Safety Report 9582722 (Version 2)
Quarter: 2014Q2

REPORT INFORMATION
  Report Type: Spontaneous
  Country: US (occurrence: US)
  Receive Date: 20131002
  Receipt Date: 20140602
  Transmission Date: 20141212
  Serious: No
  Sender: FDA-Public Use
  Company Number: US-AMGEN-USASP2013042402

PATIENT
  Age: 54 Year
  Sex: Male
  Weight: 87.08 kg

DRUGS (7)
  1. ENBREL [Suspect]
     Indication: RHEUMATOID ARTHRITIS
     Dosage: 50 MG, QWK
     Route: 058
     Dates: start: 2010
  2. CELEBREX [Concomitant]
     Indication: PRODUCT USED FOR UNKNOWN INDICATION
     Dosage: 100 MG, UNK
     Route: 065
  3. TRAMADOL HCL [Concomitant]
     Dosage: 50 MG, UNK
  4. FOLIC ACID [Concomitant]
     Dosage: 1 MG, UNK
  5. VALACYCLOVIR HCL [Concomitant]
     Dosage: 1 G, UNK
  6. HUMIRA [Concomitant]
     Dosage: UNK
  7. ORENCIA [Concomitant]
     Dosage: UNK

REACTIONS (2)
  - Therapeutic response decreased [Not Recovered/Not Resolved]
  - Laboratory test abnormal [Recovered/Resolved]
